FAERS Safety Report 9445935 (Version 3)
Quarter: 2013Q3

REPORT INFORMATION
  Report Type: Spontaneous
  Country: JP (occurrence: JP)
  Receive Date: 20130807
  Receipt Date: 20130918
  Transmission Date: 20140515
  Serious: Yes (Hospitalization)
  Sender: FDA-Public Use
  Company Number: JP-B.I. PHARMACEUTICALS,INC./RIDGEFIELD-2013-BI-23586NB

PATIENT
  Age: 86 Year
  Sex: Female
  Weight: 43.4 kg

DRUGS (13)
  1. PRAZAXA [Suspect]
     Indication: ATRIAL FIBRILLATION
     Dosage: 220 MG
     Route: 048
     Dates: end: 20130731
  2. BAYASPIRIN / ASPIRIN [Concomitant]
     Dosage: 100 MG
     Route: 048
     Dates: end: 20130801
  3. LASIX / FUROSEMIDE [Concomitant]
     Dosage: 10 MG
     Route: 048
     Dates: end: 20130801
  4. TAKEPRON [Concomitant]
     Indication: GASTRIC ULCER
     Dosage: 15 MG
     Route: 048
  5. TAKEPRON [Concomitant]
     Indication: GASTROOESOPHAGEAL REFLUX DISEASE
  6. SIGMART [Concomitant]
     Indication: ANGINA PECTORIS
     Dosage: 20 MG
     Route: 048
  7. SIGMART [Concomitant]
     Dosage: 10 MG
     Route: 048
     Dates: end: 20130730
  8. CELECOX / CELECOXIB [Concomitant]
     Dosage: 200 MG
     Route: 048
     Dates: end: 20130729
  9. DETRUSITOL / TOLTERODINE TARTRATE [Concomitant]
     Dosage: 4 MG
     Route: 048
     Dates: end: 20130729
  10. RIVASTACH / RIVASTIGMINE [Concomitant]
     Indication: DEMENTIA
     Dosage: 18 MG
     Route: 062
     Dates: end: 20130730
  11. VESICARE / SOLIFENACIN SUCCINATE [Concomitant]
     Indication: HYPERTONIC BLADDER
     Dosage: 5 MG
     Route: 048
     Dates: start: 20130730, end: 20130801
  12. EXELON / RIVASTIGMINE [Concomitant]
     Indication: DEMENTIA
     Dosage: 18 MG
     Route: 062
     Dates: start: 20130730, end: 20130801
  13. HYPEN / ETODOLAC [Concomitant]
     Indication: MUSCULOSKELETAL PAIN
     Dosage: 400 MG
     Route: 048
     Dates: start: 20130730, end: 20130801

REACTIONS (4)
  - Decreased appetite [Not Recovered/Not Resolved]
  - Activated partial thromboplastin time prolonged [Recovered/Resolved]
  - International normalised ratio increased [Recovered/Resolved]
  - Conjunctival haemorrhage [Recovered/Resolved]
